FAERS Safety Report 7295097-8 (Version None)
Quarter: 2011Q1

REPORT INFORMATION
  Report Type: 
  Country: None (occurrence: None)
  Receive Date: 20110203
  Receipt Date: 20110118
  Transmission Date: 20110831
  Serious: Yes (Death)
  Sender: FDA-Public Use
  Company Number: B0694848A

PATIENT
  Age: 62 Year
  Sex: Male

DRUGS (10)
  1. SIMVASTATIN [Suspect]
     Dosage: /ORAL
     Route: 048
  2. FLUOXETINE [Suspect]
     Dosage: /ORAL
     Route: 048
  3. BUSPIRONE HCL [Suspect]
     Dosage: /ORAL
     Route: 048
  4. METHADONE HCL [Suspect]
     Dosage: /ORAL
     Route: 048
  5. TRAMADOL HCL [Suspect]
     Dosage: /ORAL
     Route: 048
  6. QUETIAPINE (FORMULATION UNKNOWN) (QUETIAPINE FUMARATE) [Suspect]
     Dosage: //ORAL
     Route: 048
  7. VENTOLIN [Suspect]
     Dosage: /ORAL
     Route: 048
  8. ZOLPIDEM TARTRATE [Suspect]
     Dosage: /ORAL
     Route: 048
  9. VENLAFAXINE HCL [Suspect]
     Dosage: / ORAL
     Route: 048
  10. DIAZEPAM [Suspect]
     Dosage: /ORAL
     Route: 048

REACTIONS (1)
  - CARDIO-RESPIRATORY ARREST [None]
